FAERS Safety Report 10553424 (Version 3)
Quarter: 2015Q2

REPORT INFORMATION
  Report Type: Spontaneous
  Country: US (occurrence: None)
  Receive Date: 20141020
  Receipt Date: 20150420
  Transmission Date: 20150821
  Serious: No
  Sender: FDA-Public Use
  Company Number: AEGR000518

PATIENT
  Age: 40 Year
  Sex: Male
  Weight: 120.2 kg

DRUGS (16)
  1. ZETIA [Concomitant]
     Active Substance: EZETIMIBE
  2. METOPROLOL (METOPROLOL TARTRATE) [Concomitant]
     Active Substance: METOPROLOL TARTRATE
  3. ISOSORBIDE [Concomitant]
     Active Substance: ISOSORBIDE
  4. WELCHOL (COLESEVELAM HYDROCHLORIDE) [Concomitant]
  5. ASPIRIN (ACETYLSALICYLIC ACID) [Concomitant]
     Active Substance: ASPIRIN
  6. SERTRALINE [Concomitant]
     Active Substance: SERTRALINE HYDROCHLORIDE
  7. NIACIN (NICOTINIC ACID) [Concomitant]
  8. ROSUVASTATIN [Concomitant]
     Active Substance: ROSUVASTATIN
  9. PLAVIX (CLOPIDOGREL BISULFATE) [Concomitant]
  10. JUXTAPID [Suspect]
     Active Substance: LOMITAPIDE MESYLATE
     Indication: TYPE IIA HYPERLIPIDAEMIA
     Route: 048
     Dates: start: 20140324, end: 20140622
  11. OMEGA 3 6 9 (OMEGA 9 FATTY ACIDS, OMEGA-3 FATTY ACIDS, OMEGA-6 FATTY ACIDS) [Concomitant]
  12. NIASPAN (NICOTINIC ACID) [Concomitant]
  13. TRAMADOL (TRAMADOL HYDROCHLORIDE) [Concomitant]
     Active Substance: TRAMADOL HYDROCHLORIDE
  14. VITAMIN E (TOCOPHERYL ACETATE) [Concomitant]
  15. EZETIMIBE. [Concomitant]
     Active Substance: EZETIMIBE
  16. LEVOTHYROXINE (LEVOTHYROXINE SODIUM) [Concomitant]

REACTIONS (5)
  - Dyspepsia [None]
  - Abdominal distension [None]
  - Abdominal rigidity [None]
  - Dyspnoea [None]
  - Flatulence [None]

NARRATIVE: CASE EVENT DATE: 201402
